FAERS Safety Report 8391438-9 (Version None)
Quarter: 2012Q2

REPORT INFORMATION
  Report Type: 
  Country: None (occurrence: None)
  Receive Date: 20120523
  Receipt Date: 20120514
  Transmission Date: 20120825
  Serious: Yes (Other)
  Sender: FDA-Public Use
  Company Number: WAES 1205USA02511

PATIENT
  Sex: 0

DRUGS (1)
  1. PRINIVIL [Suspect]
     Indication: HYPERTENSION
     Dosage: PO
     Route: 048

REACTIONS (1)
  - HYPOKALAEMIA [None]
